FAERS Safety Report 24720113 (Version 3)
Quarter: 2025Q3

REPORT INFORMATION
  Report Type: Report from Study
  Country: EG (occurrence: EG)
  Receive Date: 20241211
  Receipt Date: 20250707
  Transmission Date: 20251020
  Serious: Yes (Hospitalization, Disabling)
  Sender: ROCHE
  Company Number: EG-ROCHE-10000150519

PATIENT
  Age: 22 Year
  Sex: Female
  Weight: 48 kg

DRUGS (1)
  1. OCREVUS [Suspect]
     Active Substance: OCRELIZUMAB
     Indication: Multiple sclerosis
     Route: 042
     Dates: start: 20240501

REACTIONS (7)
  - Pulmonary tuberculosis [Recovered/Resolved]
  - Mobility decreased [Not Recovered/Not Resolved]
  - Pulmonary oedema [Recovering/Resolving]
  - Weight decreased [Recovering/Resolving]
  - Balance disorder [Not Recovered/Not Resolved]
  - Pleurisy viral [Recovering/Resolving]
  - Viral infection [Recovering/Resolving]

NARRATIVE: CASE EVENT DATE: 20240801
